FAERS Safety Report 17977923 (Version 1)
Quarter: 2020Q3

REPORT INFORMATION
  Report Type: Spontaneous
  Country: HR (occurrence: HR)
  Receive Date: 20200703
  Receipt Date: 20200703
  Transmission Date: 20201103
  Serious: Yes (Other)
  Sender: FDA-Public Use
  Company Number: HR-GLAXOSMITHKLINE-HR2020117946

PATIENT
  Sex: Female

DRUGS (1)
  1. VOLTAREN [Suspect]
     Active Substance: DICLOFENAC SODIUM
     Indication: PRODUCT USED FOR UNKNOWN INDICATION
     Dosage: 1000 MG, QD (20 VOLTARENA (50 MG))
     Route: 048
     Dates: start: 20200202, end: 20200202

REACTIONS (6)
  - Somnolence [Unknown]
  - Suicide attempt [Unknown]
  - Speech disorder [Unknown]
  - Confusional state [Unknown]
  - Intentional overdose [Unknown]
  - Altered state of consciousness [Unknown]

NARRATIVE: CASE EVENT DATE: 20200202
